FAERS Safety Report 8960751 (Version 2)
Quarter: 2013Q1

REPORT INFORMATION
  Report Type: Spontaneous
  Country: US (occurrence: None)
  Receive Date: 20121107
  Receipt Date: 20121108
  Transmission Date: 20140127
  Serious: Yes (Other)
  Sender: FDA-Public Use
  Company Number: PP12-026

PATIENT
  Age: 55 Year
  Sex: Male
  Weight: 90.72 kg

DRUGS (1)
  1. MIXED POLLEN [Suspect]
     Indication: DRUG THERAPY
     Dates: start: 20120924

REACTIONS (4)
  - Pruritus generalised [None]
  - Flushing [None]
  - Erythema [None]
  - Erythema [None]
